FAERS Safety Report 5314596-9 (Version None)
Quarter: 2007Q2

REPORT INFORMATION
  Report Type: 
  Country: None (occurrence: None)
  Receive Date: 20070427
  Receipt Date: 20070417
  Transmission Date: 20071010
  Serious: Yes (Other)
  Sender: FDA-Public Use
  Company Number: B0467846A

PATIENT
  Age: 37 Year
  Sex: Male

DRUGS (3)
  1. SUMATRIPTAN SUCCINATE [Suspect]
     Indication: MIGRAINE
  2. PAROXETINE HYDROCHLORIDE [Concomitant]
  3. QUETIAPINE FUMARATE [Concomitant]

REACTIONS (8)
  - CEREBRAL HYPOPERFUSION [None]
  - CEREBRAL INFARCTION [None]
  - DISINHIBITION [None]
  - DRUG ABUSER [None]
  - HYPERTENSION [None]
  - OBSESSIVE-COMPULSIVE DISORDER [None]
  - SKIN LESION [None]
  - SPEECH DISORDER [None]
